FAERS Safety Report 12338296 (Version 1)
Quarter: 2016Q2

REPORT INFORMATION
  Report Type: Spontaneous
  Country: US (occurrence: US)
  Receive Date: 20160505
  Receipt Date: 20160505
  Transmission Date: 20160815
  Serious: No
  Sender: FDA-Public Use
  Company Number: US-ASTRAZENECA-2016SE43032

PATIENT
  Sex: Female
  Weight: 86.2 kg

DRUGS (3)
  1. HYDROCODONE [Concomitant]
     Active Substance: HYDROCODONE
  2. MOVANTIK [Suspect]
     Active Substance: NALOXEGOL OXALATE
     Indication: SURGERY
     Route: 048
     Dates: start: 20160211
  3. VICODIN [Concomitant]
     Active Substance: ACETAMINOPHEN\HYDROCODONE BITARTRATE

REACTIONS (7)
  - Weight decreased [Unknown]
  - Intentional product misuse [Unknown]
  - Off label use [Unknown]
  - Thyroid disorder [Unknown]
  - Asthenia [Unknown]
  - Bowel movement irregularity [Unknown]
  - Product use issue [Unknown]
